FAERS Safety Report 10580093 (Version 1)
Quarter: 2014Q4

REPORT INFORMATION
  Report Type: Spontaneous
  Country: US (occurrence: US)
  Receive Date: 20141112
  Receipt Date: 20141112
  Transmission Date: 20150529
  Serious: Yes (Hospitalization)
  Sender: FDA-Public Use
  Company Number: US-UPSHER-SMITH LABORATORIES, INC.-13003938

PATIENT
  Age: 2 Year
  Sex: Female

DRUGS (7)
  1. JANTOVEN [Suspect]
     Active Substance: WARFARIN SODIUM
     Indication: CONGENITAL MITRAL VALVE STENOSIS
     Dosage: 3.5 MG, QD
     Route: 048
     Dates: start: 201311, end: 20131119
  2. JANTOVEN [Suspect]
     Active Substance: WARFARIN SODIUM
     Dosage: 3 - 3.5 MG, QD
     Route: 048
     Dates: start: 201211, end: 201311
  3. DIGOXIN. [Concomitant]
     Active Substance: DIGOXIN
     Dosage: UNK
  4. LISINOPRIL. [Concomitant]
     Active Substance: LISINOPRIL
     Dosage: UNK
  5. LASIX [Concomitant]
     Active Substance: FUROSEMIDE
     Dosage: UNK
  6. KEPPRA [Concomitant]
     Active Substance: LEVETIRACETAM
     Dosage: UNK
  7. OXCARBAZEPINE. [Concomitant]
     Active Substance: OXCARBAZEPINE
     Dosage: UNK

REACTIONS (2)
  - International normalised ratio increased [Recovered/Resolved]
  - Mouth haemorrhage [Recovered/Resolved]

NARRATIVE: CASE EVENT DATE: 20131116
